FAERS Safety Report 24814822 (Version 1)
Quarter: 2025Q1

REPORT INFORMATION
  Report Type: Spontaneous
  Country: CA (occurrence: CA)
  Receive Date: 20250107
  Receipt Date: 20250107
  Transmission Date: 20250408
  Serious: Yes (Death)
  Sender: SANDOZ
  Company Number: CA-SANDOZ-SDZ2025CA000615

PATIENT

DRUGS (9)
  1. ATORVASTATIN CALCIUM [Suspect]
     Active Substance: ATORVASTATIN CALCIUM
     Indication: Type IIa hyperlipidaemia
     Route: 065
  2. EZETIMIBE [Suspect]
     Active Substance: EZETIMIBE
     Indication: Type IIa hyperlipidaemia
     Dosage: 10 MG, QD
     Route: 065
  3. IMPLITAPIDE [Suspect]
     Active Substance: IMPLITAPIDE
     Indication: Type IIa hyperlipidaemia
     Route: 065
  4. LOMITAPIDE [Suspect]
     Active Substance: LOMITAPIDE
     Indication: Type IIa hyperlipidaemia
     Dosage: 20 MG, QD
     Route: 048
  5. LOVASTATIN [Suspect]
     Active Substance: LOVASTATIN
     Indication: Type IIa hyperlipidaemia
     Route: 065
  6. PROBUCOL [Suspect]
     Active Substance: PROBUCOL
     Indication: Type IIa hyperlipidaemia
     Route: 065
  7. ROSUVASTATIN [Suspect]
     Active Substance: ROSUVASTATIN
     Indication: Type IIa hyperlipidaemia
     Route: 065
  8. REPATHA [Suspect]
     Active Substance: EVOLOCUMAB
     Indication: Type IIa hyperlipidaemia
     Route: 058
  9. SIMVASTATIN [Suspect]
     Active Substance: SIMVASTATIN
     Indication: Type IIa hyperlipidaemia
     Route: 065

REACTIONS (2)
  - Disease progression [Fatal]
  - Type IIa hyperlipidaemia [Fatal]
